FAERS Safety Report 22063729 (Version 6)
Quarter: 2023Q2

REPORT INFORMATION
  Report Type: Report from Study
  Country: US (occurrence: US)
  Receive Date: 20230306
  Receipt Date: 20230607
  Transmission Date: 20230722
  Serious: Yes (Other)
  Sender: FDA-Public Use
  Company Number: US-002147023-NVSC2023US051080

PATIENT
  Sex: Female

DRUGS (2)
  1. KISQALI [Suspect]
     Active Substance: RIBOCICLIB
     Indication: Neoplasm malignant
     Dosage: 200 MG
     Route: 048
  2. PIQRAY [Suspect]
     Active Substance: ALPELISIB
     Indication: Product used for unknown indication
     Dosage: UNK
     Route: 048
     Dates: start: 20230303

REACTIONS (12)
  - Neoplasm malignant [Unknown]
  - Malignant neoplasm progression [Unknown]
  - Bowel movement irregularity [Unknown]
  - Alopecia [Unknown]
  - Abdominal discomfort [Unknown]
  - Candida infection [Unknown]
  - Blood glucose increased [Unknown]
  - Nausea [Unknown]
  - Cystitis [Unknown]
  - Dry skin [Unknown]
  - Fatigue [Unknown]
  - Drug ineffective [Not Recovered/Not Resolved]
